FAERS Safety Report 4332293-3 (Version None)
Quarter: 2004Q1

REPORT INFORMATION
  Report Type: 
  Country: None (occurrence: None)
  Receive Date: 20040326
  Receipt Date: 20040212
  Transmission Date: 20041129
  Serious: No
  Sender: FDA-Public Use
  Company Number: US-JNJFOC-20040203301

PATIENT
  Age: 87 Year
  Sex: Female

DRUGS (2)
  1. REMINYL [Suspect]
     Indication: DEMENTIA ALZHEIMER'S TYPE
     Dosage: 8 MG, 2 IN 1 DAY, ORAL
     Route: 048
     Dates: start: 20040101
  2. FOSAMAX [Concomitant]

REACTIONS (2)
  - DYSGEUSIA [None]
  - WEIGHT DECREASED [None]
